FAERS Safety Report 4375927-X (Version None)
Quarter: 2004Q2

REPORT INFORMATION
  Report Type: 
  Country: None (occurrence: None)
  Receive Date: 20040607
  Receipt Date: 20040528
  Transmission Date: 20050107
  Serious: Yes (Hospitalization)
  Sender: FDA-Public Use
  Company Number: USA-2004-0015393

PATIENT
  Age: 53 Year
  Sex: Female

DRUGS (6)
  1. CEFDITOREN PIVOXIL (SIMILAR TO NDA 21-222) (CEFDITOREN PIVOXIL) OTHER [Suspect]
     Indication: UPPER RESPIRATORY TRACT INFECTION
     Dosage: 300 MG, ORAL
     Route: 048
     Dates: start: 20040414, end: 20040418
  2. LOXONIN (LOXOPROFEN SODIUM) [Suspect]
     Indication: UPPER RESPIRATORY TRACT INFECTION
     Dosage: 300 MG, ORAL
     Route: 048
     Dates: start: 20040422, end: 20040518
  3. LEVOFLOXACIN [Concomitant]
  4. MUCOSOLVAN (AMBROXOL HYDROCHLORIDE) [Concomitant]
  5. THEO-DUR [Concomitant]
  6. ASTHPHYLLIN (DIPHENHYDRAMINE HYDROCHLORIDE, DIPROPHYLLINE, EPHEDRINE H [Concomitant]

REACTIONS (1)
  - EOSINOPHILIC PNEUMONIA [None]
